FAERS Safety Report 5980614-8 (Version None)
Quarter: 2008Q4

REPORT INFORMATION
  Report Type: 
  Country: None (occurrence: None)
  Receive Date: 20081205
  Receipt Date: 20080214
  Transmission Date: 20090506
  Serious: No
  Sender: FDA-Public Use
  Company Number: A0709495A

PATIENT
  Age: 45 Year
  Sex: Male

DRUGS (1)
  1. COMMIT [Suspect]
     Dates: start: 20071016, end: 20080208

REACTIONS (2)
  - INTENTIONAL DRUG MISUSE [None]
  - NERVOUSNESS [None]
